FAERS Safety Report 19776435 (Version 1)
Quarter: 2021Q3

REPORT INFORMATION
  Report Type: Spontaneous
  Country: US (occurrence: US)
  Receive Date: 20210901
  Receipt Date: 20210901
  Transmission Date: 20211014
  Serious: Yes (Other)
  Sender: FDA-Public Use
  Company Number: US-GLAXOSMITHKLINE-US2021GSK183072

PATIENT

DRUGS (4)
  1. RANITIDINE. [Suspect]
     Active Substance: RANITIDINE
     Indication: BACK PAIN
     Dosage: UNK, QD
     Route: 065
     Dates: start: 200801, end: 201512
  2. RANITIDINE. [Suspect]
     Active Substance: RANITIDINE
     Indication: BACK PAIN
     Dosage: UNK, QD
     Route: 065
     Dates: start: 200801, end: 201512
  3. ZANTAC [Suspect]
     Active Substance: RANITIDINE HYDROCHLORIDE
     Indication: BACK PAIN
     Dosage: 25 MG, QD
     Route: 065
     Dates: start: 200601, end: 200812
  4. ZANTAC [Suspect]
     Active Substance: RANITIDINE HYDROCHLORIDE
     Indication: BACK PAIN
     Dosage: 25 MG, QD
     Route: 065
     Dates: start: 200601, end: 200812

REACTIONS (1)
  - Prostate cancer [Unknown]
